FAERS Safety Report 6847270-8 (Version None)
Quarter: 2010Q2

REPORT INFORMATION
  Report Type: 
  Country: None (occurrence: None)
  Receive Date: 20100629
  Receipt Date: 20100429
  Transmission Date: 20101027
  Serious: No
  Sender: FDA-Public Use
  Company Number: US-WYE-H14926710

PATIENT
  Sex: Male

DRUGS (1)
  1. PRISTIQ [Suspect]
     Dates: start: 20100429

REACTIONS (3)
  - ANXIETY [None]
  - EUPHORIC MOOD [None]
  - PSYCHOMOTOR HYPERACTIVITY [None]
